FAERS Safety Report 10823094 (Version 1)
Quarter: 2015Q1

REPORT INFORMATION
  Report Type: Spontaneous
  Country: US (occurrence: None)
  Receive Date: 20150218
  Receipt Date: 20150218
  Transmission Date: 20150721
  Serious: Yes (Other)
  Sender: FDA-Public Use
  Company Number: None

PATIENT
  Age: 69 Year
  Sex: Female

DRUGS (1)
  1. HUMIRA [Suspect]
     Active Substance: ADALIMUMAB
     Indication: CROHN^S DISEASE
     Dosage: DATES OF USE: LAST FILLED 1/20/2015, STRENGTH: 40MG, DOSE FORM: INJECTABLE, FREQUENCY: QOW, ROUTE: SUBCUTANEOUS 057
     Route: 058
     Dates: end: 20150120

REACTIONS (1)
  - Alopecia [None]

NARRATIVE: CASE EVENT DATE: 20150213
